FAERS Safety Report 11099152 (Version 1)
Quarter: 2015Q2

REPORT INFORMATION
  Report Type: Spontaneous
  Country: CN (occurrence: None)
  Receive Date: 20150506
  Receipt Date: 20150506
  Transmission Date: 20150821
  Serious: Yes (Death)
  Sender: FDA-Public Use
  Company Number: FK201502010

PATIENT
  Age: 41 Year
  Sex: Male

DRUGS (3)
  1. PROPOFOL (MANUFACTURER UNKNOWN) (PROPOFOL) (PROPOFOL) [Suspect]
     Active Substance: PROPOFOL
     Indication: DRUG ABUSE
     Dosage: 400 MG, 1 IN 1 TOTAL
  2. MIDAZOLAM [Suspect]
     Active Substance: MIDAZOLAM\MIDAZOLAM HYDROCHLORIDE
     Indication: DRUG ABUSE
     Dosage: 10 MG, 1 IN 1 TOTAL
  3. VECURONIUM [Suspect]
     Active Substance: VECURONIUM BROMIDE
     Indication: DRUG ABUSE
     Dosage: 8 MG, 1 IN 1 TOTAL

REACTIONS (6)
  - Cardio-respiratory arrest [None]
  - Pulmonary fibrosis [None]
  - Intentional overdose [None]
  - Victim of homicide [None]
  - Emphysema [None]
  - Multi-organ disorder [None]
